FAERS Safety Report 25449040 (Version 1)
Quarter: 2025Q2

REPORT INFORMATION
  Report Type: Spontaneous
  Country: LV (occurrence: LV)
  Receive Date: 20250618
  Receipt Date: 20250618
  Transmission Date: 20250717
  Serious: Yes (Other)
  Sender: CHEPLAPHARM
  Company Number: LV-CHEPLA-2025007359

PATIENT
  Age: 91 Year
  Sex: Female

DRUGS (2)
  1. OLANZAPINE [Suspect]
     Active Substance: OLANZAPINE
     Indication: Dementia with Lewy bodies
     Dosage: DAILY DOSE: 5 MILLIGRAM
  2. HALOPERIDOL [Suspect]
     Active Substance: HALOPERIDOL
     Indication: Dementia with Lewy bodies

REACTIONS (5)
  - Vascular encephalopathy [Unknown]
  - Muscle rigidity [Unknown]
  - Somnolence [Unknown]
  - Decreased interest [Unknown]
  - Product use in unapproved indication [Not Recovered/Not Resolved]
